FAERS Safety Report 19471480 (Version 1)
Quarter: 2021Q2

REPORT INFORMATION
  Report Type: Spontaneous
  Country: US (occurrence: US)
  Receive Date: 20210628
  Receipt Date: 20210628
  Transmission Date: 20210717
  Serious: Yes (Other)
  Sender: FDA-Public Use
  Company Number: US-ELI_LILLY_AND_COMPANY-US202106010695

PATIENT
  Age: 58 Year
  Sex: Male

DRUGS (2)
  1. HUMULIN R U?500 [Suspect]
     Active Substance: INSULIN HUMAN
     Indication: PRODUCT USED FOR UNKNOWN INDICATION
     Dosage: UNK UNK, UNKNOWN
     Route: 065
     Dates: start: 202102
  2. HUMULIN R U?500 [Suspect]
     Active Substance: INSULIN HUMAN
     Indication: PRODUCT USED FOR UNKNOWN INDICATION
     Dosage: UNK, UNKNOWN
     Dates: start: 202102

REACTIONS (10)
  - Oedema peripheral [Unknown]
  - Skin ulcer [Unknown]
  - Nervousness [Recovered/Resolved]
  - Tremor [Recovered/Resolved]
  - Dysphemia [Recovered/Resolved]
  - Product dose omission issue [Unknown]
  - Depression [Recovered/Resolved]
  - Feeling cold [Recovered/Resolved]
  - Hypoglycaemia [Recovered/Resolved]
  - Abdominal discomfort [Recovered/Resolved]

NARRATIVE: CASE EVENT DATE: 20210616
